FAERS Safety Report 4914345-X (Version None)
Quarter: 2006Q1

REPORT INFORMATION
  Report Type: 
  Country: None (occurrence: None)
  Receive Date: 20060213
  Receipt Date: 20060203
  Transmission Date: 20060701
  Serious: Yes (Hospitalization, Other)
  Sender: FDA-Public Use
  Company Number: 2006-02-0150

PATIENT
  Age: 77 Year
  Sex: Male

DRUGS (1)
  1. LORATADINE [Suspect]
     Indication: PRURITUS
     Dosage: 10 MG QDX10D ORAL
     Route: 048

REACTIONS (2)
  - NEPHROPATHY [None]
  - RENAL TUBULAR NECROSIS [None]
